FAERS Safety Report 6196613-X (Version None)
Quarter: 2009Q2

REPORT INFORMATION
  Report Type: 
  Country: None (occurrence: None)
  Receive Date: 20090520
  Receipt Date: 20090511
  Transmission Date: 20091009
  Serious: Yes (Hospitalization, Congenital Anomaly)
  Sender: FDA-Public Use
  Company Number: A0639382A

PATIENT
  Sex: Male
  Weight: 2.2 kg

DRUGS (6)
  1. PAXIL [Suspect]
     Indication: PANIC ATTACK
     Dosage: 20MG PER DAY
     Dates: start: 20050101, end: 20060212
  2. TEGRETOL [Concomitant]
     Dates: start: 20011201
  3. TOPAMAX [Concomitant]
     Dates: start: 20011201
  4. VITAMIN TAB [Concomitant]
     Dates: start: 20041101, end: 20050827
  5. KLONOPIN [Concomitant]
  6. YASMIN [Concomitant]
     Dates: end: 20050101

REACTIONS (31)
  - ATRIAL SEPTAL DEFECT [None]
  - ATRIOVENTRICULAR BLOCK COMPLETE [None]
  - ATRIOVENTRICULAR BLOCK SECOND DEGREE [None]
  - AV DISSOCIATION [None]
  - CARDIAC FAILURE CONGESTIVE [None]
  - CARDIAC MURMUR [None]
  - CARDIOMEGALY [None]
  - CYANOSIS [None]
  - DECREASED APPETITE [None]
  - DILATATION VENTRICULAR [None]
  - DRUG EXPOSURE DURING PREGNANCY [None]
  - EMOTIONAL DISTRESS [None]
  - ERYTHEMA [None]
  - HAEMATOCRIT DECREASED [None]
  - HAEMOGLOBIN DECREASED [None]
  - HEARING IMPAIRED [None]
  - INJURY [None]
  - LEFT ATRIAL DILATATION [None]
  - MOTOR DYSFUNCTION [None]
  - PLEURAL EFFUSION [None]
  - PNEUMONIA [None]
  - PULMONARY VALVE STENOSIS [None]
  - RED BLOOD CELL COUNT DECREASED [None]
  - RESPIRATORY DISORDER [None]
  - RESPIRATORY FAILURE [None]
  - SINUS TACHYCARDIA [None]
  - SPEECH DISORDER [None]
  - SPEECH DISORDER DEVELOPMENTAL [None]
  - SUPRAVENTRICULAR EXTRASYSTOLES [None]
  - VENTRICULAR SEPTAL DEFECT [None]
  - VOMITING [None]
